FAERS Safety Report 5278150-X (Version None)
Quarter: 2007Q1

REPORT INFORMATION
  Report Type: 
  Country: None (occurrence: None)
  Receive Date: 20061213
  Receipt Date: 20060323
  Transmission Date: 20070707
  Serious: No
  Sender: FDA-Public Use
  Company Number: 2006UW05136

PATIENT
  Age: 53 Year
  Sex: Male
  Weight: 94.347 kg

DRUGS (6)
  1. SEROQUEL [Suspect]
     Indication: POST-TRAUMATIC STRESS DISORDER
     Dates: start: 20060306, end: 20060312
  2. SEROQUEL [Suspect]
     Indication: SLEEP DISORDER
     Dates: start: 20060306, end: 20060312
  3. OXYCONTIN [Concomitant]
  4. KEPPRA [Concomitant]
  5. NEXIUM [Concomitant]
  6. KLONOPIN [Concomitant]

REACTIONS (7)
  - AMNESIA [None]
  - BLOOD GLUCOSE DECREASED [None]
  - CONVULSION [None]
  - FATIGUE [None]
  - FEELING ABNORMAL [None]
  - NIGHT SWEATS [None]
  - SPEECH DISORDER [None]
